FAERS Safety Report 9440062 (Version 1)
Quarter: 2013Q3

REPORT INFORMATION
  Report Type: Not Available
  Country: NO (occurrence: NO)
  Receive Date: 20130805
  Receipt Date: 20130805
  Transmission Date: 20140515
  Serious: Yes (Hospitalization)
  Sender: FDA-Public Use
  Company Number: NO-ASTELLAS-2013EU006619

PATIENT
  Age: 68 Year
  Sex: Female

DRUGS (4)
  1. BETMIGA [Suspect]
     Indication: URGE INCONTINENCE
     Dosage: 50 MG, UID/QD
     Route: 048
     Dates: start: 20130615, end: 20130621
  2. SELO-ZOK [Concomitant]
     Indication: ATRIAL FIBRILLATION
     Route: 048
  3. TAMBOCOR [Concomitant]
     Indication: ATRIAL FIBRILLATION
     Route: 048
  4. MAREVAN [Concomitant]
     Indication: ATRIAL FIBRILLATION
     Route: 048

REACTIONS (1)
  - Hepatitis toxic [Recovering/Resolving]
